FAERS Safety Report 6432852-8 (Version None)
Quarter: 2009Q4

REPORT INFORMATION
  Report Type: 
  Country: None (occurrence: None)
  Receive Date: 20091109
  Receipt Date: 20091106
  Transmission Date: 20100525
  Serious: Yes (Hospitalization)
  Sender: FDA-Public Use
  Company Number: B0601905A

PATIENT
  Age: 80 Year
  Sex: Female

DRUGS (2)
  1. AUGMENTIN '125' [Suspect]
     Dosage: 1G UNKNOWN
     Route: 048
     Dates: start: 20070927, end: 20071003
  2. AMOXICILLIN AND CLAVULANATE POTASSIUM [Suspect]
     Dosage: 1G SINGLE DOSE
     Route: 048
     Dates: start: 20071005, end: 20071005

REACTIONS (2)
  - MALAISE [None]
  - URTICARIA [None]
